FAERS Safety Report 7106480-5 (Version None)
Quarter: 2010Q4

REPORT INFORMATION
  Report Type: 
  Country: None (occurrence: None)
  Receive Date: 20101116
  Receipt Date: 20101104
  Transmission Date: 20110411
  Serious: Yes (Other)
  Sender: FDA-Public Use
  Company Number: JP-PFIZER INC-2010140346

PATIENT
  Age: 56 Year
  Sex: Male

DRUGS (5)
  1. VARENICLINE TARTRATE [Suspect]
     Dosage: 0.5 MG, 1X/DAY
     Dates: start: 20090206, end: 20090208
  2. VARENICLINE TARTRATE [Suspect]
     Dosage: 1 MG, 1X/DAY
     Dates: start: 20090209, end: 20090211
  3. VARENICLINE TARTRATE [Suspect]
     Dosage: 0.5 MG, 2X/DAY
     Dates: start: 20090212, end: 20090218
  4. VARENICLINE TARTRATE [Suspect]
     Dosage: 1 MG, 2X/DAY
     Dates: start: 20090219, end: 20090304
  5. VARENICLINE TARTRATE [Suspect]
     Dosage: 1 MG, 1X/DAY
     Dates: start: 20090305, end: 20090323

REACTIONS (1)
  - MALLORY-WEISS SYNDROME [None]
